FAERS Safety Report 7994687-4 (Version None)
Quarter: 2011Q4

REPORT INFORMATION
  Report Type: 
  Country: None (occurrence: None)
  Receive Date: 20111220
  Receipt Date: 20111216
  Transmission Date: 20120403
  Serious: Yes (Other)
  Sender: FDA-Public Use
  Company Number: US-PFIZER INC-2011306853

PATIENT
  Sex: Female
  Weight: 79.365 kg

DRUGS (3)
  1. ADVAIR DISKUS 100/50 [Concomitant]
     Indication: EMPHYSEMA
     Dosage: UNK
  2. ZYRTEC [Concomitant]
     Indication: HYPERSENSITIVITY
     Dosage: UNK
  3. PREMPRO [Suspect]
     Indication: HORMONE THERAPY
     Dosage: 0.625/2.5 MG, 1X/DAY
     Route: 048
     Dates: start: 20100501

REACTIONS (1)
  - HAEMORRHAGE [None]
